FAERS Safety Report 9296779 (Version 2)
Quarter: 2013Q4

REPORT INFORMATION
  Report Type: Spontaneous
  Country: US (occurrence: US)
  Receive Date: 20130517
  Receipt Date: 20131104
  Transmission Date: 20140711
  Serious: Yes (Hospitalization)
  Sender: FDA-Public Use
  Company Number: US-B.I. PHARMACEUTICALS,INC./RIDGEFIELD-2013-BI-13711BP

PATIENT
  Age: 82 Year
  Sex: Female
  Weight: 70.31 kg

DRUGS (15)
  1. PRADAXA [Suspect]
     Indication: ANTICOAGULANT THERAPY
     Dosage: 300 MG
     Route: 048
     Dates: start: 20110809, end: 20120329
  2. PRADAXA [Suspect]
     Indication: CEREBROVASCULAR ACCIDENT PROPHYLAXIS
  3. PRADAXA [Suspect]
     Indication: ATRIAL FIBRILLATION
  4. CRANBERRY [Concomitant]
  5. CALCIUM [Concomitant]
     Dosage: 1200 MG
     Route: 048
  6. VENASTAT [Concomitant]
     Route: 048
  7. FISH OIL [Concomitant]
     Dosage: 1200 MG
     Route: 048
  8. PRESERVISION [Concomitant]
  9. TYLENOL [Concomitant]
  10. AMLODIPINE [Concomitant]
     Dosage: 5 MG
     Route: 048
     Dates: start: 2008, end: 2012
  11. DIGOXIN [Concomitant]
     Dosage: 0.125 MG
     Route: 048
     Dates: start: 2009, end: 2012
  12. GABAPENTIN [Concomitant]
     Dosage: 2400 MG
     Route: 048
     Dates: start: 2009, end: 2012
  13. MELOXICAM [Concomitant]
     Dosage: 15 MG
     Route: 048
  14. ZOLPIDEM [Concomitant]
     Route: 048
     Dates: start: 2008, end: 2012
  15. OXYGEN [Concomitant]

REACTIONS (2)
  - Gastrointestinal haemorrhage [Unknown]
  - Haemorrhagic anaemia [Unknown]
